FAERS Safety Report 5088914-3 (Version None)
Quarter: 2006Q3

REPORT INFORMATION
  Report Type: 
  Country: None (occurrence: None)
  Receive Date: 20060824
  Receipt Date: 20060824
  Transmission Date: 20061208
  Serious: Yes (Hospitalization)
  Sender: FDA-Public Use
  Company Number: None

PATIENT
  Age: 66 Year
  Sex: Female

DRUGS (1)
  1. DIETHYLPROPION HCL [Suspect]
     Indication: WEIGHT DECREASED

REACTIONS (1)
  - PULMONARY HYPERTENSION [None]
